FAERS Safety Report 8395661-9 (Version None)
Quarter: 2012Q2

REPORT INFORMATION
  Report Type: 
  Country: None (occurrence: None)
  Receive Date: 20120530
  Receipt Date: 20120126
  Transmission Date: 20120825
  Serious: No
  Sender: FDA-Public Use
  Company Number: US-GLAXOSMITHKLINE-A0963503A

PATIENT
  Age: 69 Year
  Sex: Male

DRUGS (1)
  1. VENTOLIN [Suspect]
     Indication: PNEUMONIA
     Dosage: 1PUFF THREE TIMES PER DAY
     Route: 055
     Dates: start: 20120105

REACTIONS (1)
  - GLOSSITIS [None]
